FAERS Safety Report 21086431 (Version 3)
Quarter: 2022Q3

REPORT INFORMATION
  Report Type: Spontaneous
  Country: US (occurrence: US)
  Receive Date: 20220715
  Receipt Date: 20220902
  Transmission Date: 20221026
  Serious: Yes (Other)
  Sender: FDA-Public Use
  Company Number: US-Blueprint Medicines Corporation-250

PATIENT
  Sex: Male

DRUGS (3)
  1. AYVAKIT [Suspect]
     Active Substance: AVAPRITINIB
     Indication: Systemic mastocytosis
     Route: 048
     Dates: start: 20220321
  2. AYVAKIT [Suspect]
     Active Substance: AVAPRITINIB
     Route: 048
     Dates: start: 20220321
  3. ONDANSETRON [Concomitant]
     Active Substance: ONDANSETRON
     Indication: Product used for unknown indication
     Route: 065

REACTIONS (8)
  - Prostate cancer [Unknown]
  - Prostate cancer metastatic [Unknown]
  - Dysgeusia [Recovered/Resolved]
  - COVID-19 [Unknown]
  - Respiratory tract congestion [Unknown]
  - Head discomfort [Unknown]
  - Discomfort [Unknown]
  - Constipation [Recovered/Resolved]
